FAERS Safety Report 8042902-3 (Version None)
Quarter: 2012Q1

REPORT INFORMATION
  Report Type: 
  Country: None (occurrence: None)
  Receive Date: 20120112
  Receipt Date: 20120109
  Transmission Date: 20120608
  Serious: Yes (Other)
  Sender: FDA-Public Use
  Company Number: GB-GENZYME-CLOF-1001998

PATIENT
  Sex: Male

DRUGS (6)
  1. EVOLTRA [Suspect]
     Indication: ACUTE LEUKAEMIA
     Dosage: UNK
     Route: 065
     Dates: start: 20111122, end: 20111126
  2. PLERIXAFOR [Suspect]
     Indication: ACUTE LEUKAEMIA
  3. DAUNORUBICIN HCL [Suspect]
     Dosage: UNK
     Route: 065
     Dates: start: 20111126, end: 20111126
  4. PLERIXAFOR [Suspect]
     Indication: HAEMATOPOIETIC STEM CELL MOBILISATION
     Dosage: UNK
     Route: 065
     Dates: start: 20111122, end: 20111126
  5. DAUNORUBICIN HCL [Suspect]
     Indication: ACUTE MYELOID LEUKAEMIA
     Dosage: UNK
     Route: 065
     Dates: start: 20111122, end: 20111122
  6. DAUNORUBICIN HCL [Suspect]
     Dosage: UNK
     Route: 065
     Dates: start: 20111124, end: 20111124

REACTIONS (1)
  - NEUTROPENIA [None]
